FAERS Safety Report 8300788-3 (Version None)
Quarter: 2012Q2

REPORT INFORMATION
  Report Type: 
  Country: None (occurrence: None)
  Receive Date: 20120420
  Receipt Date: 20120418
  Transmission Date: 20120825
  Serious: Yes (Other)
  Sender: FDA-Public Use
  Company Number: PHEH2012US008269

PATIENT
  Sex: Female

DRUGS (1)
  1. EXFORGE [Suspect]

REACTIONS (8)
  - MICTURITION DISORDER [None]
  - ASTHENIA [None]
  - JOINT SWELLING [None]
  - BACK PAIN [None]
  - ASTHMA [None]
  - DYSPNOEA [None]
  - FATIGUE [None]
  - EYE PRURITUS [None]
